FAERS Safety Report 7639098-6 (Version None)
Quarter: 2011Q3

REPORT INFORMATION
  Report Type: 
  Country: None (occurrence: None)
  Receive Date: 20110727
  Receipt Date: 20110722
  Transmission Date: 20111222
  Serious: Yes (Death)
  Sender: FDA-Public Use
  Company Number: PHHY2011US50679

PATIENT
  Sex: Female
  Weight: 84.09 kg

DRUGS (1)
  1. EXJADE [Suspect]
     Indication: SICKLE CELL ANAEMIA
     Dosage: 1625 MG, DAILY
     Route: 048
     Dates: start: 20110501

REACTIONS (2)
  - DEATH [None]
  - DIARRHOEA [None]
